FAERS Safety Report 13745486 (Version 1)
Quarter: 2017Q3

REPORT INFORMATION
  Report Type: Spontaneous
  Country: US (occurrence: US)
  Receive Date: 20170711
  Receipt Date: 20170711
  Transmission Date: 20171127
  Serious: Yes (Hospitalization)
  Sender: FDA-Public Use
  Company Number: None

PATIENT
  Age: 30 Year
  Sex: Male

DRUGS (1)
  1. TAFINLAR [Suspect]
     Active Substance: DABRAFENIB MESYLATE

REACTIONS (4)
  - Staphylococcal infection [None]
  - Pyrexia [None]
  - Drug eruption [None]
  - Scratch [None]

NARRATIVE: CASE EVENT DATE: 20170616
